FAERS Safety Report 23959820 (Version 1)
Quarter: 2024Q2

REPORT INFORMATION
  Report Type: Report from Study
  Country: ZA (occurrence: ZA)
  Receive Date: 20240611
  Receipt Date: 20240611
  Transmission Date: 20240716
  Serious: Yes (Hospitalization)
  Sender: FDA-Public Use
  Company Number: ZA-Merck Healthcare KGaA-2024030566

PATIENT
  Age: 55 Year
  Sex: Female

DRUGS (1)
  1. MAVENCLAD [Suspect]
     Active Substance: CLADRIBINE
     Indication: Multiple sclerosis
     Dosage: 10 DAYS IN A THERAPY YEAR.
     Route: 048
     Dates: start: 20240214

REACTIONS (3)
  - Pain in extremity [Unknown]
  - Dysuria [Unknown]
  - Headache [Unknown]

NARRATIVE: CASE EVENT DATE: 20240522
